FAERS Safety Report 13450402 (Version 4)
Quarter: 2018Q2

REPORT INFORMATION
  Report Type: Spontaneous
  Country: IT (occurrence: IT)
  Receive Date: 20170418
  Receipt Date: 20180620
  Transmission Date: 20180711
  Serious: Yes (Hospitalization, Other)
  Sender: FDA-Public Use
  Company Number: IT-ROCHE-1921373

PATIENT
  Age: 77 Year
  Sex: Female

DRUGS (2)
  1. LUCENTIS [Suspect]
     Active Substance: RANIBIZUMAB
     Indication: DIABETIC RETINAL OEDEMA
     Dosage: 0.5 MG, TOTAL
     Route: 031
  2. LUCENTIS [Suspect]
     Active Substance: RANIBIZUMAB
     Dosage: 0.5 MG, TOTAL
     Route: 031
     Dates: start: 20170227, end: 20170227

REACTIONS (5)
  - Acute myocardial infarction [Recovered/Resolved]
  - Coronary artery stenosis [Unknown]
  - Pulmonary oedema [Recovered/Resolved]
  - Acute respiratory failure [Recovered/Resolved]
  - Hypertensive crisis [Recovered/Resolved]

NARRATIVE: CASE EVENT DATE: 20170312
